FAERS Safety Report 7230361-X (Version None)
Quarter: 2011Q1

REPORT INFORMATION
  Report Type: 
  Country: None (occurrence: None)
  Receive Date: 20110118
  Receipt Date: 20110114
  Transmission Date: 20110831
  Serious: Yes (Hospitalization)
  Sender: FDA-Public Use
  Company Number: CN-ABBOTT-11P-035-0697681-00

PATIENT
  Age: 53 Year
  Sex: Female

DRUGS (3)
  1. ERYTHROMYCIN [Suspect]
     Indication: UPPER RESPIRATORY TRACT INFECTION
  2. PENICILLIN [Suspect]
     Indication: UPPER RESPIRATORY TRACT INFECTION
  3. CEPHALOSPORIN [Suspect]
     Indication: UPPER RESPIRATORY TRACT INFECTION

REACTIONS (2)
  - TUBULOINTERSTITIAL NEPHRITIS [None]
  - ANAPHYLACTIC REACTION [None]
